FAERS Safety Report 23481315 (Version 8)
Quarter: 2024Q2

REPORT INFORMATION
  Report Type: Spontaneous
  Country: GR (occurrence: GR)
  Receive Date: 20240205
  Receipt Date: 20240422
  Transmission Date: 20240716
  Serious: No
  Sender: FDA-Public Use
  Company Number: GR-PFIZER INC-PV202400006469

PATIENT
  Age: 12 Year
  Sex: Male
  Weight: 43 kg

DRUGS (2)
  1. GENOTROPIN [Suspect]
     Active Substance: SOMATROPIN
     Indication: Growth hormone deficiency
     Dosage: 1.4 MG FOR 4 DAYS
     Route: 058
     Dates: start: 202311
  2. GENOTROPIN [Suspect]
     Active Substance: SOMATROPIN
     Indication: Hypopituitarism
     Dosage: 1.2 MG FOR 2 DAYS, 1 DAY OFF FOR 6 DAYS

REACTIONS (5)
  - Device use error [Unknown]
  - Poor quality device used [Unknown]
  - Device issue [Unknown]
  - Device leakage [Unknown]
  - Device breakage [Unknown]

NARRATIVE: CASE EVENT DATE: 20240110
